FAERS Safety Report 5857960-1 (Version None)
Quarter: 2008Q3

REPORT INFORMATION
  Report Type: 
  Country: None (occurrence: None)
  Receive Date: 20080825
  Receipt Date: 20080825
  Transmission Date: 20090109
  Serious: Yes (Other)
  Sender: FDA-Public Use
  Company Number: None

PATIENT
  Age: 64 Year
  Sex: Female
  Weight: 53.5244 kg

DRUGS (1)
  1. LAMOTRIGINE [Suspect]
     Indication: EPILEPSY
     Dosage: 200MG 2/DAY PO
     Route: 048
     Dates: start: 20080815, end: 20080824

REACTIONS (10)
  - ASTHENIA [None]
  - CONVULSION [None]
  - DIZZINESS [None]
  - FEAR [None]
  - HEADACHE [None]
  - INSOMNIA [None]
  - SCREAMING [None]
  - SOMNOLENCE [None]
  - THIRST [None]
  - URINARY INCONTINENCE [None]
